FAERS Safety Report 6215415-9 (Version None)
Quarter: 2009Q2

REPORT INFORMATION
  Report Type: 
  Country: None (occurrence: None)
  Receive Date: 20090603
  Receipt Date: 20090519
  Transmission Date: 20091009
  Serious: Yes (Death)
  Sender: FDA-Public Use
  Company Number: 2009AL000702

PATIENT
  Age: 84 Year
  Sex: Female

DRUGS (13)
  1. DIGOXIN [Suspect]
     Dosage: 0.125MG, DAILY, PO
     Route: 048
  2. ASPIRIN [Concomitant]
  3. ENSURE [Concomitant]
  4. CARVEDILOL [Concomitant]
  5. CIPROFLOXACIN [Concomitant]
  6. LISINOPRIL [Concomitant]
  7. MULTI-VITAMINS [Concomitant]
  8. PLAVIX [Concomitant]
  9. POTASSIUM CHLORIDE [Concomitant]
  10. XENADERM [Concomitant]
  11. TOLNAPTATE [Concomitant]
  12. SIMVASTATIN [Concomitant]
  13. SODIUM CHLORIDE [Concomitant]

REACTIONS (11)
  - ANXIETY [None]
  - APNOEA [None]
  - BRADYCARDIA [None]
  - CARDIAC FAILURE CONGESTIVE [None]
  - CONFUSIONAL STATE [None]
  - DEMENTIA [None]
  - ECONOMIC PROBLEM [None]
  - INJURY [None]
  - PAIN [None]
  - PNEUMONIA [None]
  - THERAPEUTIC AGENT TOXICITY [None]
